FAERS Safety Report 5200294-9 (Version None)
Quarter: 2007Q1

REPORT INFORMATION
  Report Type: 
  Country: None (occurrence: None)
  Receive Date: 20070105
  Receipt Date: 20061226
  Transmission Date: 20070707
  Serious: Yes (Hospitalization, Other)
  Sender: FDA-Public Use
  Company Number: US-AMGEN-US204845

PATIENT
  Sex: Female

DRUGS (2)
  1. ENBREL [Suspect]
     Indication: RHEUMATOID ARTHRITIS
     Route: 058
     Dates: start: 20000101
  2. ENBREL [Suspect]
     Indication: PSORIASIS

REACTIONS (7)
  - ABDOMINAL ADHESIONS [None]
  - ABDOMINAL PAIN [None]
  - ARTHRALGIA [None]
  - BACK PAIN [None]
  - HEPATIC ENZYME ABNORMAL [None]
  - JOINT SWELLING [None]
  - ROTATOR CUFF REPAIR [None]
